FAERS Safety Report 19798554 (Version 1)
Quarter: 2021Q3

REPORT INFORMATION
  Report Type: Spontaneous
  Country: US (occurrence: US)
  Receive Date: 20210906
  Receipt Date: 20210906
  Transmission Date: 20211014
  Serious: No
  Sender: FDA-Public Use
  Company Number: US-QED THERAPEUTICS-2118033

PATIENT
  Age: 57 Year
  Sex: Female

DRUGS (1)
  1. TRUSELTIQ [Suspect]
     Active Substance: INFIGRATINIB
     Indication: CHOLANGIOCARCINOMA
     Route: 048
     Dates: start: 20210805, end: 202108

REACTIONS (1)
  - General physical health deterioration [Unknown]
